FAERS Safety Report 16500287 (Version 2)
Quarter: 2019Q3

REPORT INFORMATION
  Report Type: Spontaneous
  Country: SE (occurrence: SE)
  Receive Date: 20190701
  Receipt Date: 20190706
  Transmission Date: 20191004
  Serious: Yes (Life-Threatening, Hospitalization, Other)
  Sender: FDA-Public Use
  Company Number: SE-ACCORD-135854

PATIENT
  Age: 50 Year
  Sex: Female

DRUGS (3)
  1. QUETIAPINE. [Suspect]
     Active Substance: QUETIAPINE
     Indication: PRODUCT USED FOR UNKNOWN INDICATION
     Dosage: STRENGTH 200 MG, SLOW RELEASE TABLET, 18 G (90 TABLETS X 200 MG)
     Route: 048
  2. METHYLPHENIDATE. [Concomitant]
     Active Substance: METHYLPHENIDATE
     Dosage: UNKNOWN AMOUNTS
     Route: 048
  3. ZOPICLONE [Concomitant]
     Active Substance: ZOPICLONE
     Dosage: UNKNOWN AMOUNTS
     Route: 048

REACTIONS (7)
  - Depressed level of consciousness [Unknown]
  - Intentional overdose [Unknown]
  - Muscle twitching [Unknown]
  - Nystagmus [Unknown]
  - Bezoar [Unknown]
  - Pneumonia aspiration [Unknown]
  - Tachycardia [Unknown]
